FAERS Safety Report 13102481 (Version 1)
Quarter: 2017Q1

REPORT INFORMATION
  Report Type: Spontaneous
  Country: DE (occurrence: DE)
  Receive Date: 20170110
  Receipt Date: 20170110
  Transmission Date: 20170428
  Serious: Yes (Hospitalization)
  Sender: FDA-Public Use
  Company Number: DE-MYLANLABS-2017M1000398

PATIENT

DRUGS (8)
  1. DIMETHYL SULFOXIDE. [Suspect]
     Active Substance: DIMETHYL SULFOXIDE
     Indication: PRODUCT USED FOR UNKNOWN INDICATION
     Route: 050
  2. RITUXIMAB [Concomitant]
     Active Substance: RITUXIMAB
     Indication: B-CELL LYMPHOMA
     Dosage: R-BEAM PROTOCOL
     Route: 065
     Dates: start: 201410
  3. CARMUSTINE [Concomitant]
     Active Substance: CARMUSTINE
     Indication: B-CELL LYMPHOMA
     Dosage: R-BEAM PROTOCOL
     Route: 065
     Dates: start: 201410
  4. ARA-C [Concomitant]
     Active Substance: CYTARABINE
     Indication: B-CELL LYMPHOMA
     Dosage: R-BEAM PROTOCOL
     Route: 065
     Dates: start: 201410
  5. MELPHALAN [Concomitant]
     Active Substance: MELPHALAN
     Indication: B-CELL LYMPHOMA
     Dosage: R-BEAM PROTOCOL
     Route: 065
     Dates: start: 201410
  6. MANNITOL. [Concomitant]
     Active Substance: MANNITOL
     Indication: PREMEDICATION
     Route: 065
  7. ETOPOSIDE. [Concomitant]
     Active Substance: ETOPOSIDE
     Indication: B-CELL LYMPHOMA
     Dosage: R-BEAM PROTOCOL
     Route: 065
     Dates: start: 201410
  8. PREDNISOLONE. [Concomitant]
     Active Substance: PREDNISOLONE
     Indication: PREMEDICATION
     Route: 065

REACTIONS (2)
  - Blood pressure increased [Recovered/Resolved]
  - Aphasia [Recovered/Resolved]
